FAERS Safety Report 8431200-1 (Version None)
Quarter: 2012Q2

REPORT INFORMATION
  Report Type: 
  Country: None (occurrence: None)
  Receive Date: 20120612
  Receipt Date: 20120608
  Transmission Date: 20120825
  Serious: Yes (Hospitalization, Other)
  Sender: FDA-Public Use
  Company Number: PHHY2012GB049257

PATIENT
  Age: 80 Year
  Sex: Male
  Weight: 70 kg

DRUGS (6)
  1. FUSIDIC ACID [Interacting]
     Indication: LOCALISED INFECTION
     Dosage: 250 MG, BID
     Route: 048
     Dates: start: 20120413, end: 20120513
  2. CILOSTAZOL [Concomitant]
     Indication: POOR PERIPHERAL CIRCULATION
     Dosage: 50 MG, BID
     Dates: start: 20120510
  3. FLUCLOXACILLIN [Concomitant]
     Indication: LOCALISED INFECTION
     Dosage: 500 MG, QID
     Dates: start: 20120413, end: 20120513
  4. OMEPRAZOLE [Concomitant]
     Indication: GASTROOESOPHAGEAL REFLUX DISEASE
     Dosage: 20 MG, UNK
     Route: 048
     Dates: start: 20120220
  5. SIMVASTATIN [Suspect]
     Indication: BLOOD CHOLESTEROL INCREASED
     Dosage: 40 MG, QD
     Route: 048
     Dates: start: 20120220, end: 20120513
  6. NICORANDIL [Concomitant]
     Indication: ANGINA PECTORIS
     Dosage: 10 MG, BID
     Route: 048
     Dates: start: 20120401

REACTIONS (4)
  - RHABDOMYOLYSIS [None]
  - DRUG INTERACTION [None]
  - PAIN IN EXTREMITY [None]
  - ASTHENIA [None]
